FAERS Safety Report 6596010-9 (Version None)
Quarter: 2010Q1

REPORT INFORMATION
  Report Type: 
  Country: None (occurrence: None)
  Receive Date: 20100223
  Receipt Date: 20100211
  Transmission Date: 20100710
  Serious: Yes (Hospitalization)
  Sender: FDA-Public Use
  Company Number: PHHY2010AU03264

PATIENT
  Sex: Male
  Weight: 81.6 kg

DRUGS (2)
  1. CLOZARIL [Suspect]
     Indication: SCHIZOPHRENIA
     Dosage: 600 MG, UNK
     Route: 048
     Dates: start: 19970113, end: 20100122
  2. CLOZARIL [Suspect]
     Dosage: 650 MG, QD
     Route: 048
     Dates: start: 20100122

REACTIONS (4)
  - ABNORMAL BEHAVIOUR [None]
  - CONFUSIONAL STATE [None]
  - DELUSION [None]
  - MENTAL DISORDER [None]
